FAERS Safety Report 13385830 (Version 1)
Quarter: 2017Q1

REPORT INFORMATION
  Report Type: Spontaneous
  Country: US (occurrence: US)
  Receive Date: 20170330
  Receipt Date: 20170330
  Transmission Date: 20170429
  Serious: No
  Sender: FDA-Public Use
  Company Number: None

PATIENT
  Age: 74 Year
  Sex: Female
  Weight: 58.97 kg

DRUGS (7)
  1. SULFAMETHOXAZOLE TMP DS TABLET (SUBSTITUTE FOR BACTRIM TABLET) [Suspect]
     Active Substance: SULFAMETHOXAZOLE\TRIMETHOPRIM
     Indication: POSTOPERATIVE WOUND INFECTION
     Dosage: QUANTITY:1 TABLET 2X DAY;?
     Route: 048
     Dates: start: 20170313, end: 20170315
  2. SPANISH RADISH [Concomitant]
  3. VITAMIN D [Concomitant]
     Active Substance: CHOLECALCIFEROL
  4. SULFAMETHOXAZOLE TMP DS TABLET (SUBSTITUTE FOR BACTRIM TABLET) [Suspect]
     Active Substance: SULFAMETHOXAZOLE\TRIMETHOPRIM
     Indication: CELLULITIS
     Dosage: QUANTITY:1 TABLET 2X DAY;?
     Route: 048
     Dates: start: 20170313, end: 20170315
  5. LEVOTHYROXIN [Concomitant]
     Active Substance: LEVOTHYROXINE
  6. ECHINACIA [Concomitant]
  7. LACTIC ACID YEAST [Concomitant]

REACTIONS (9)
  - Headache [None]
  - Oral fungal infection [None]
  - Anxiety [None]
  - Tremor [None]
  - Nausea [None]
  - Malaise [None]
  - Respiratory disorder [None]
  - Insomnia [None]
  - Abdominal pain upper [None]

NARRATIVE: CASE EVENT DATE: 20170314
